FAERS Safety Report 10141368 (Version 1)
Quarter: 2014Q2

REPORT INFORMATION
  Report Type: Spontaneous
  Country: GB (occurrence: GB)
  Receive Date: 20140429
  Receipt Date: 20140429
  Transmission Date: 20141212
  Serious: Yes (Other)
  Sender: FDA-Public Use
  Company Number: GB-PFIZER INC-2014116018

PATIENT
  Age: 60 Year
  Sex: Female
  Weight: 63.5 kg

DRUGS (5)
  1. CHAMPIX [Suspect]
     Indication: SMOKING CESSATION THERAPY
     Dosage: PRESCRIBED AMOUNT
     Route: 048
     Dates: start: 20140405, end: 20140411
  2. SERETIDE [Concomitant]
     Dosage: UNK
  3. CITALOPRAM [Concomitant]
     Dosage: UNK
  4. BENDROFLUAZIDE [Concomitant]
     Dosage: UNK
  5. SALBUTAMOL [Concomitant]
     Dosage: UNK

REACTIONS (2)
  - Palpitations [Recovered/Resolved]
  - Crying [Recovered/Resolved]
